FAERS Safety Report 10419143 (Version 1)
Quarter: 2014Q2

REPORT INFORMATION
  Report Type: Spontaneous
  Country: US (occurrence: None)
  Receive Date: 20140625
  Receipt Date: 20140625
  Transmission Date: 20141212
  Serious: No
  Sender: FDA-Public Use
  Company Number: A-US2014-94212

PATIENT
  Age: 63 Year
  Sex: Female

DRUGS (1)
  1. OPSUMIT (MACITENTAN) [Suspect]
     Indication: PRODUCT USED FOR UNKNOWN INDICATION
     Route: 048
     Dates: end: 20140124

REACTIONS (4)
  - Nausea [None]
  - Vomiting [None]
  - Migraine [None]
  - Headache [None]
